FAERS Safety Report 10258762 (Version 1)
Quarter: 2014Q2

REPORT INFORMATION
  Report Type: Spontaneous
  Country: US (occurrence: US)
  Receive Date: 20140625
  Receipt Date: 20140625
  Transmission Date: 20141212
  Serious: No
  Sender: FDA-Public Use
  Company Number: US-ASTELLAS-2013US007061

PATIENT
  Age: 60 Year
  Sex: Female
  Weight: 132 kg

DRUGS (8)
  1. VESICARE [Suspect]
     Indication: INCONTINENCE
     Route: 048
     Dates: start: 2010, end: 2012
  2. VESICARE [Suspect]
     Route: 048
     Dates: start: 2012
  3. CELEBREX [Concomitant]
     Indication: ARTHRITIS
     Route: 065
     Dates: start: 1993
  4. CELEBREX [Concomitant]
     Indication: ARTHROPATHY
  5. LIPITOR [Concomitant]
     Indication: PRODUCT USED FOR UNKNOWN INDICATION
     Route: 065
  6. LYRICA [Concomitant]
     Indication: NEUROPATHY PERIPHERAL
     Route: 065
  7. PANTOPRAZOLE [Concomitant]
     Indication: PRODUCT USED FOR UNKNOWN INDICATION
     Route: 065
  8. SONATA                             /01454001/ [Concomitant]
     Indication: PRODUCT USED FOR UNKNOWN INDICATION
     Route: 065

REACTIONS (2)
  - Drug ineffective [Recovered/Resolved]
  - Nocturia [Recovered/Resolved]
